FAERS Safety Report 8809979 (Version 2)
Quarter: 2012Q4

REPORT INFORMATION
  Report Type: 
  Country: NL (occurrence: NL)
  Receive Date: 20120926
  Receipt Date: 20121004
  Transmission Date: 20130627
  Serious: Yes (Death)
  Sender: FDA-Public Use
  Company Number: NL-PFIZER INC-2012233690

PATIENT
  Sex: Female

DRUGS (6)
  1. DEXAMETHASONE SODIUM PHOSPHATE [Suspect]
     Indication: HYPERGAMMAGLOBULINAEMIA
     Dosage: UNK
  2. FLUDARABINE PHOSPHATE [Suspect]
     Indication: HYPERGAMMAGLOBULINAEMIA
     Dosage: UNK
  3. DOXORUBICIN HCL [Suspect]
     Indication: HYPERGAMMAGLOBULINAEMIA
     Dosage: UNK
  4. CYCLOPHOSPHAMIDE [Suspect]
     Indication: HYPERGAMMAGLOBULINAEMIA
     Dosage: 4 courses
  5. VINCRISTINE [Suspect]
     Indication: HYPERGAMMAGLOBULINAEMIA
     Dosage: 4 courses
  6. PREDNISONE [Suspect]
     Indication: HYPERGAMMAGLOBULINAEMIA
     Dosage: 4 courses

REACTIONS (1)
  - Progressive multifocal leukoencephalopathy [Fatal]
